FAERS Safety Report 8507539-8 (Version None)
Quarter: 2012Q3

REPORT INFORMATION
  Report Type: 
  Country: None (occurrence: None)
  Receive Date: 20120713
  Receipt Date: 20120625
  Transmission Date: 20120928
  Serious: No
  Sender: FDA-Public Use
  Company Number: US-ASTRAZENECA-2011SE41425

PATIENT
  Age: 51 Year
  Sex: Female

DRUGS (9)
  1. NEXIUM [Suspect]
     Indication: GASTROOESOPHAGEAL REFLUX DISEASE
     Route: 048
     Dates: start: 20010101, end: 20110101
  2. ROLAIDS [Concomitant]
  3. NEXIUM [Suspect]
     Route: 048
     Dates: start: 20090208
  4. NEXIUM [Suspect]
     Route: 048
     Dates: start: 20090708
  5. NEXIUM [Suspect]
     Route: 048
     Dates: start: 20081208
  6. PRILOSEC [Concomitant]
     Dosage: ONCE A DAY
  7. BISMUTH SUBSALICYLATE [Concomitant]
  8. CALCIUM CARBONATE [Concomitant]
  9. NEXIUM [Suspect]
     Dosage: EVERYDAY
     Route: 048
     Dates: start: 20040101, end: 20110101

REACTIONS (12)
  - HAND FRACTURE [None]
  - DEPRESSION [None]
  - LOWER LIMB FRACTURE [None]
  - FIBULA FRACTURE [None]
  - OSTEOPOROSIS [None]
  - ANKLE FRACTURE [None]
  - FOOT FRACTURE [None]
  - BONE DENSITY DECREASED [None]
  - OSTEOPENIA [None]
  - EMOTIONAL DISTRESS [None]
  - TIBIA FRACTURE [None]
  - PAIN [None]
